FAERS Safety Report 26102220 (Version 1)
Quarter: 2025Q4

REPORT INFORMATION
  Report Type: Spontaneous
  Country: EU (occurrence: None)
  Receive Date: 20251128
  Receipt Date: 20251128
  Transmission Date: 20260118
  Serious: Yes (Congenital Anomaly)
  Sender: UCB
  Company Number: None

PATIENT
  Age: 2 Month
  Weight: 2.38 kg

DRUGS (1)
  1. KEPPRA [Suspect]
     Active Substance: LEVETIRACETAM
     Indication: Epilepsy
     Dosage: 2 GRAM, ONCE DAILY (QD)

REACTIONS (2)
  - Foetal growth restriction [Recovered/Resolved]
  - Maternal exposure during pregnancy [Unknown]
